FAERS Safety Report 4650107-9 (Version None)
Quarter: 2005Q2

REPORT INFORMATION
  Report Type: 
  Country: None (occurrence: None)
  Receive Date: 20050428
  Receipt Date: 20050422
  Transmission Date: 20051028
  Serious: Yes (Hospitalization, Other)
  Sender: FDA-Public Use
  Company Number: HQWYE016514APR05

PATIENT
  Age: 7 Year
  Sex: Male
  Weight: 26 kg

DRUGS (1)
  1. ZOSYN [Suspect]
     Indication: ABDOMINAL MASS
     Dosage: 1 GRAM, INTRATHECAL
     Route: 037
     Dates: start: 20050412, end: 20050412

REACTIONS (4)
  - ENCEPHALOPATHY [None]
  - GRAND MAL CONVULSION [None]
  - INCORRECT ROUTE OF DRUG ADMINISTRATION [None]
  - MEDICATION ERROR [None]
